FAERS Safety Report 8209904-5 (Version None)
Quarter: 2012Q1

REPORT INFORMATION
  Report Type: 
  Country: None (occurrence: None)
  Receive Date: 20120314
  Receipt Date: 20120308
  Transmission Date: 20120608
  Serious: Yes (Death)
  Sender: FDA-Public Use
  Company Number: CHPA2012US004694

PATIENT
  Age: 90 Year
  Sex: Female

DRUGS (1)
  1. EXCEDRIN EXTRA STRENGTH TABLETS [Suspect]
     Indication: ARTHRITIS
     Dosage: 6 DF, QD
     Route: 048
     Dates: end: 19890101

REACTIONS (2)
  - DEATH [None]
  - INCORRECT DRUG ADMINISTRATION DURATION [None]
